FAERS Safety Report 9007099 (Version 4)
Quarter: 2013Q1

REPORT INFORMATION
  Report Type: Spontaneous
  Country: BR (occurrence: BR)
  Receive Date: 20130110
  Receipt Date: 20130226
  Transmission Date: 20140127
  Serious: Yes (Other)
  Sender: FDA-Public Use
  Company Number: BR-PFIZER INC-2013008969

PATIENT
  Age: 44 Year
  Sex: Female
  Weight: 54 kg

DRUGS (5)
  1. LYRICA [Suspect]
     Dosage: 75 MG (ONE CAPSULE), 2X/DAY
     Route: 048
     Dates: start: 201207
  2. AAS [Concomitant]
     Indication: GASTRIC DISORDER
     Dosage: ONE TABLET DAILY
     Dates: start: 201211
  3. RANITIDINE HYDROCHLORIDE [Concomitant]
     Indication: GASTRIC DISORDER
     Dosage: TWO TABLETS DAILY
     Dates: start: 201211
  4. ESCITALOPRAM OXALATE [Concomitant]
     Indication: ANXIETY
     Dosage: ONE TABLET DAILY
     Dates: start: 201212
  5. HIDANTAL [Concomitant]
     Indication: CEREBROVASCULAR ACCIDENT
     Dosage: THREE TABLETS DAILY
     Dates: start: 201202

REACTIONS (1)
  - Intracranial aneurysm [Unknown]
